FAERS Safety Report 7949522-7 (Version None)
Quarter: 2011Q4

REPORT INFORMATION
  Report Type: 
  Country: None (occurrence: None)
  Receive Date: 20111125
  Receipt Date: 20111114
  Transmission Date: 20120403
  Serious: Yes (Disabling)
  Sender: FDA-Public Use
  Company Number: MSTR-NO-1111S-0253

PATIENT
  Age: 72 Year
  Sex: Male

DRUGS (1)
  1. METASTRON [Suspect]
     Indication: METASTATIC PAIN
     Dosage: SINGLE DOSE, INTRAVENOUS
     Route: 042
     Dates: start: 20111019, end: 20111019

REACTIONS (1)
  - RENAL FAILURE [None]
